FAERS Safety Report 9934196 (Version 1)
Quarter: 2014Q1

REPORT INFORMATION
  Report Type: Spontaneous
  Country: US (occurrence: US)
  Receive Date: 20140228
  Receipt Date: 20140228
  Transmission Date: 20141002
  Serious: Yes (Other)
  Sender: FDA-Public Use
  Company Number: US-BAYER-2014-028383

PATIENT
  Age: 39 Year
  Sex: Female

DRUGS (1)
  1. MIRENA [Suspect]
     Indication: MENORRHAGIA
     Dosage: 20 MCG/24HR, CONT
     Route: 015
     Dates: start: 201308, end: 201402

REACTIONS (7)
  - Genital haemorrhage [None]
  - Syncope [None]
  - Complication of device insertion [None]
  - Procedural pain [None]
  - Post procedural haemorrhage [None]
  - Abdominal distension [None]
  - Weight increased [None]
